FAERS Safety Report 25020160 (Version 1)
Quarter: 2025Q1

REPORT INFORMATION
  Report Type: Spontaneous
  Country: US (occurrence: US)
  Receive Date: 20250227
  Receipt Date: 20250227
  Transmission Date: 20250409
  Serious: No
  Sender: PFIZER
  Company Number: US-PFIZER INC-PV202200044695

PATIENT
  Age: 84 Year
  Sex: Male

DRUGS (8)
  1. MEKTOVI [Suspect]
     Active Substance: BINIMETINIB
     Indication: Thyroid cancer
  2. MEKTOVI [Suspect]
     Active Substance: BINIMETINIB
     Indication: Malignant melanoma
     Dosage: 3 DF, 2X/DAY (EVERY 12 HOURS)
  3. MEKTOVI [Suspect]
     Active Substance: BINIMETINIB
     Indication: Colorectal cancer
  4. MEKTOVI [Suspect]
     Active Substance: BINIMETINIB
     Indication: Ovarian cancer
     Dosage: 45 MG, 2X/DAY (45 MG IN AM + PM)
     Route: 048
  5. MEKTOVI [Suspect]
     Active Substance: BINIMETINIB
     Dosage: 45 MG, 2X/DAY (TAKE 3 TABLETS (45 MG TOTAL) IN MORNING AND AT BEDTIME (AM AND PM). SWALLOW WHOLE)
     Route: 048
     Dates: end: 20250214
  6. BRAFTOVI [Suspect]
     Active Substance: ENCORAFENIB
     Indication: Thyroid cancer
     Dosage: 300 MG, DAILY
     Route: 048
  7. BRAFTOVI [Suspect]
     Active Substance: ENCORAFENIB
     Indication: Malignant melanoma
     Dosage: 300 MG, 1X/DAY (TAKE 4 CAPSULES (300 MG TOTAL) IN THE MORNING)
     Route: 048
     Dates: end: 20250214
  8. BRAFTOVI [Suspect]
     Active Substance: ENCORAFENIB
     Indication: Colorectal cancer

REACTIONS (3)
  - Product prescribing error [Unknown]
  - Off label use [Unknown]
  - Confusional state [Unknown]
